FAERS Safety Report 7801512-0 (Version None)
Quarter: 2011Q4

REPORT INFORMATION
  Report Type: 
  Country: None (occurrence: None)
  Receive Date: 20111005
  Receipt Date: 20110907
  Transmission Date: 20120403
  Serious: Yes (Other)
  Sender: FDA-Public Use
  Company Number: AUR-APU-2011-04948

PATIENT
  Sex: Female

DRUGS (9)
  1. FENTANYL [Concomitant]
  2. FAMCICLOVIR [Suspect]
     Indication: CHRONIC FATIGUE SYNDROME
     Dosage: 3 DOSAGE FORMS (1 DOSAGE FORMS,3 IN 1 D),ORAL
     Route: 048
  3. MIRTAZAPINE [Concomitant]
  4. LEVOXYL [Concomitant]
  5. TEGRETOL [Concomitant]
  6. LORAZEPAM [Concomitant]
  7. VICODIN [Concomitant]
  8. MELATONIN (MELATONIN) [Concomitant]
  9. TRYPTOPHAN (TRYPTOPHAN, L-) [Concomitant]

REACTIONS (4)
  - AGITATION [None]
  - MIGRAINE [None]
  - RESTLESS LEGS SYNDROME [None]
  - CONDITION AGGRAVATED [None]
